FAERS Safety Report 9963561 (Version 1)
Quarter: 2014Q1

REPORT INFORMATION
  Report Type: Report from Study
  Country: US (occurrence: US)
  Receive Date: 20140305
  Receipt Date: 20140305
  Transmission Date: 20141002
  Serious: No
  Sender: FDA-Public Use
  Company Number: US-ABBVIE-13P-163-1117099-00

PATIENT
  Age: 52 Year
  Sex: Female

DRUGS (22)
  1. HUMIRA [Suspect]
     Indication: RHEUMATOID ARTHRITIS
     Dosage: WEDNESDAY
     Dates: start: 20130626
  2. METHOTREXATE [Concomitant]
     Indication: RHEUMATOID ARTHRITIS
  3. IRON [Concomitant]
     Indication: PRODUCT USED FOR UNKNOWN INDICATION
  4. CYMBALTA [Concomitant]
     Indication: DEPRESSION
  5. COLACE [Concomitant]
     Indication: CONSTIPATION PROPHYLAXIS
  6. VITAMIN D [Concomitant]
     Indication: PRODUCT USED FOR UNKNOWN INDICATION
  7. B12 [Concomitant]
     Indication: PRODUCT USED FOR UNKNOWN INDICATION
     Route: 050
  8. HYDROCHLOROTHIAZIDE [Concomitant]
     Indication: HYPERTENSION
  9. GENERIC ZOCAR [Concomitant]
     Indication: BLOOD CHOLESTEROL INCREASED
  10. SINGULAIR [Concomitant]
     Indication: ASTHMA
  11. PROAIR [Concomitant]
     Indication: DYSPNOEA
     Dosage: UP TO 4 TIMES DAILY
  12. ADVAIR [Concomitant]
     Indication: DYSPNOEA
     Dosage: 25/50
  13. THEOPHYLLINE ER [Concomitant]
     Indication: DYSPNOEA
  14. MULTIVITAMIN [Concomitant]
     Indication: PRODUCT USED FOR UNKNOWN INDICATION
     Dosage: DOCTOR RX
  15. CALCIUM [Concomitant]
     Indication: PRODUCT USED FOR UNKNOWN INDICATION
  16. MAGNESIUM [Concomitant]
     Indication: PRODUCT USED FOR UNKNOWN INDICATION
  17. FOLIC ACID [Concomitant]
     Indication: PRODUCT USED FOR UNKNOWN INDICATION
  18. ZINC [Concomitant]
     Indication: PRODUCT USED FOR UNKNOWN INDICATION
  19. OMEGA 3 FISH OIL DHA [Concomitant]
     Indication: PRODUCT USED FOR UNKNOWN INDICATION
  20. MORPHINE SR [Concomitant]
     Indication: PAIN
  21. STEROID [Concomitant]
     Indication: PRODUCT USED FOR UNKNOWN INDICATION
     Dosage: TAPERING DOSE - 2 PILLS A DAY - UNTIL THEY LAST
  22. ZZQUIL (OTC) [Concomitant]
     Indication: INSOMNIA

REACTIONS (1)
  - Pain [Not Recovered/Not Resolved]
